FAERS Safety Report 19106389 (Version 1)
Quarter: 2021Q2

REPORT INFORMATION
  Report Type: Spontaneous
  Country: US (occurrence: US)
  Receive Date: 20210408
  Receipt Date: 20210408
  Transmission Date: 20210717
  Serious: No
  Sender: FDA-Public Use
  Company Number: US-CIPLA LTD.-2020US07666

PATIENT

DRUGS (5)
  1. BUPROPION. [Suspect]
     Active Substance: BUPROPION
     Dosage: 300 MILLIGRAM, QD (IN THE MORNING), (2X150 MILLIGRAM) FOR A DURATION OF 3.5 WEEKS
     Route: 065
     Dates: start: 202009, end: 20201003
  2. BUPROPION. [Suspect]
     Active Substance: BUPROPION
     Dosage: 150 MILLIGRAM (DOSE REDUCED), FOR 3 DAYS
     Route: 065
     Dates: start: 20201004, end: 20201006
  3. MELATONIN [Concomitant]
     Active Substance: MELATONIN
     Indication: SLEEP DISORDER
     Dosage: UNK
     Route: 065
  4. BUPROPION. [Suspect]
     Active Substance: BUPROPION
     Indication: PRODUCT USED FOR UNKNOWN INDICATION
     Dosage: 150 MILLIGRAMS FOR 2.5 MONTHS
     Route: 065
     Dates: start: 202006, end: 202009
  5. CLONAZEPAM. [Concomitant]
     Active Substance: CLONAZEPAM
     Indication: ANXIETY
     Dosage: 0.5 MILLIGRAM, PRN (OCCASIONALLY/ AS NEEDED), FOR MANY YEARS
     Route: 065

REACTIONS (1)
  - Tinnitus [Not Recovered/Not Resolved]

NARRATIVE: CASE EVENT DATE: 20200930
